FAERS Safety Report 10187355 (Version 2)
Quarter: 2014Q3

REPORT INFORMATION
  Report Type: Spontaneous
  Country: IT (occurrence: None)
  Receive Date: 20140520
  Receipt Date: 20140805
  Transmission Date: 20150326
  Serious: Yes (Hospitalization, Other)
  Sender: FDA-Public Use
  Company Number: AUR-APL-2014-05773

PATIENT
  Age: 48 Year
  Sex: Male

DRUGS (2)
  1. TAPAZOLE (THIAMAZOLE) [Concomitant]
  2. CARVEDILOL. [Suspect]
     Active Substance: CARVEDILOL
     Indication: HYPERTENSION
     Route: 048
     Dates: start: 20140429, end: 20140429

REACTIONS (2)
  - Blood pressure inadequately controlled [None]
  - Syncope [None]

NARRATIVE: CASE EVENT DATE: 20140429
